FAERS Safety Report 8583637-8 (Version None)
Quarter: 2012Q3

REPORT INFORMATION
  Report Type: 
  Country: None (occurrence: None)
  Receive Date: 20120809
  Receipt Date: 20120628
  Transmission Date: 20120928
  Serious: Yes (Other)
  Sender: FDA-Public Use
  Company Number: US-009507513-1204USA02344

PATIENT

DRUGS (8)
  1. LOSARTAN POTASSIUM [Concomitant]
  2. METOPROLOL TARTRATE [Concomitant]
  3. TIMOPTIC [Suspect]
     Indication: ANGLE CLOSURE GLAUCOMA
     Route: 047
  4. AMLODIPINE [Concomitant]
  5. TIMOPTIC IN OCUDOSE [Suspect]
     Dosage: 1 DF, BID
     Route: 047
     Dates: start: 20120201
  6. SIMVASTATIN [Concomitant]
  7. TIMOPTIC IN OCUDOSE [Suspect]
     Indication: ANGLE CLOSURE GLAUCOMA
     Dosage: 1 DF, BID
     Route: 047
     Dates: start: 20100101
  8. TIMOPTIC IN OCUDOSE [Suspect]
     Dosage: 1 DF, BID
     Route: 047
     Dates: start: 20120404

REACTIONS (7)
  - OCULAR HYPERAEMIA [None]
  - DRY SKIN [None]
  - SCAB [None]
  - BLINDNESS [None]
  - EYE PRURITUS [None]
  - INTRAOCULAR PRESSURE INCREASED [None]
  - HYPERSENSITIVITY [None]
